FAERS Safety Report 7551233-7 (Version None)
Quarter: 2011Q2

REPORT INFORMATION
  Report Type: 
  Country: None (occurrence: None)
  Receive Date: 20110616
  Receipt Date: 20110607
  Transmission Date: 20111010
  Serious: No
  Sender: FDA-Public Use
  Company Number: PHHY2011US38991

PATIENT
  Sex: Female
  Weight: 113.38 kg

DRUGS (14)
  1. LEVOTHYROXINE SODIUM [Concomitant]
     Dosage: 100 MG, UNK
  2. FERROUS SULFATE TAB [Concomitant]
     Dosage: 325 MG, UNK
  3. FUROSEMIDE [Concomitant]
     Dosage: 20 MG, UNK
  4. ASCORBIC ACID [Concomitant]
     Dosage: 500 MG, UNK
  5. ACIPHEX [Concomitant]
     Dosage: 20 MG, UNK
  6. LIDOCAINE [Concomitant]
  7. OXYCOD [Concomitant]
     Dosage: 5-325 MG
  8. POTASSIUM PHOSPHATES [Concomitant]
  9. CLONIDINE [Concomitant]
     Dosage: 0.1 MG, UNK
  10. BETAMETHASONE DIPROPIONATE [Concomitant]
  11. TASIGNA [Suspect]
     Dosage: 300 MG, BID
     Route: 048
  12. GABAPENTIN [Concomitant]
     Dosage: 100 MG, UNK
  13. CALCIUM CARBONATE [Concomitant]
  14. FIBER-LAX [Concomitant]
     Dosage: 0.52 G, UNK

REACTIONS (1)
  - ORAL PAIN [None]
